FAERS Safety Report 5766036-3 (Version None)
Quarter: 2008Q2

REPORT INFORMATION
  Report Type: 
  Country: None (occurrence: None)
  Receive Date: 20080611
  Receipt Date: 20080602
  Transmission Date: 20081010
  Serious: Yes (Other)
  Sender: FDA-Public Use
  Company Number: US-PFIZER INC-2008046514

PATIENT
  Sex: Female
  Weight: 94.545 kg

DRUGS (4)
  1. CELEBREX [Suspect]
     Indication: PAIN
     Dates: start: 20080529, end: 20080531
  2. CELEBREX [Suspect]
     Indication: OEDEMA PERIPHERAL
  3. CEPHALEXIN [Concomitant]
  4. DARVOCET [Concomitant]

REACTIONS (2)
  - HYPERSENSITIVITY [None]
  - THROAT TIGHTNESS [None]
